FAERS Safety Report 10674758 (Version 2)
Quarter: 2015Q2

REPORT INFORMATION
  Report Type: Spontaneous
  Country: US (occurrence: US)
  Receive Date: 20141224
  Receipt Date: 20150524
  Transmission Date: 20150821
  Serious: Yes (Other)
  Sender: FDA-Public Use
  Company Number: US-JNJFOC-20141216975

PATIENT
  Age: 59 Year
  Sex: Female
  Weight: 136.08 kg

DRUGS (2)
  1. INVOKANA [Suspect]
     Active Substance: CANAGLIFLOZIN
     Indication: BLOOD GLUCOSE ABNORMAL
     Route: 048
     Dates: start: 20141119, end: 201412
  2. GLUCOPHAGE [Concomitant]
     Active Substance: METFORMIN HYDROCHLORIDE
     Indication: BLOOD GLUCOSE ABNORMAL
     Dates: start: 201105

REACTIONS (7)
  - Kidney infection [Recovered/Resolved]
  - Blood glucose increased [Not Recovered/Not Resolved]
  - Fatigue [Not Recovered/Not Resolved]
  - Blood urine present [Recovered/Resolved]
  - Arthralgia [Not Recovered/Not Resolved]
  - Drug ineffective [Unknown]
  - Renal pain [Not Recovered/Not Resolved]

NARRATIVE: CASE EVENT DATE: 201412
